FAERS Safety Report 6217223-1 (Version None)
Quarter: 2009Q2

REPORT INFORMATION
  Report Type: 
  Country: None (occurrence: None)
  Receive Date: 20090608
  Receipt Date: 20090527
  Transmission Date: 20091009
  Serious: Yes (Other)
  Sender: FDA-Public Use
  Company Number: ES-PFIZER INC-2009220762

PATIENT
  Age: 51 Year

DRUGS (3)
  1. ARTILOG [Suspect]
     Indication: ADENOMATOUS POLYPOSIS COLI
     Dosage: 200 MG, 1X/DAY
     Route: 048
     Dates: start: 20090128, end: 20090131
  2. DIAZEPAM [Suspect]
     Indication: FIBROMYALGIA
     Dosage: 5 MG, 1X/DAY
     Route: 048
     Dates: start: 20090128, end: 20090131
  3. ESERTIA [Suspect]
     Indication: FIBROMYALGIA
     Dosage: 20 MG, 1X/DAY
     Route: 048
     Dates: start: 20090128, end: 20090131

REACTIONS (4)
  - ASTHENIA [None]
  - FATIGUE [None]
  - SEDATION [None]
  - URINARY INCONTINENCE [None]
